FAERS Safety Report 18920080 (Version 1)
Quarter: 2021Q1

REPORT INFORMATION
  Report Type: Spontaneous
  Country: FR (occurrence: FR)
  Receive Date: 20210222
  Receipt Date: 20210222
  Transmission Date: 20210420
  Serious: Yes (Congenital Anomaly)
  Sender: FDA-Public Use
  Company Number: FR-TEVA-2021-FR-1880866

PATIENT
  Age: 0 Year
  Sex: Female
  Weight: 2.23 kg

DRUGS (2)
  1. LEVOTHYROX 150 MICROGRAMMES, COMPRIME SECABLE [Suspect]
     Active Substance: LEVOTHYROXINE SODIUM
     Indication: HYPOTHYROIDISM
     Dosage: LEVOTHYROX 150 AND 125 EVERY OTHER DAY
     Route: 064
     Dates: start: 20180409, end: 20181219
  2. RAMIPRIL. [Suspect]
     Active Substance: RAMIPRIL
     Indication: HYPERTENSION
     Dosage: 5MG THEN 10 MG , UNIT DOSE : 5 MG
     Route: 064
     Dates: start: 201801, end: 20180831

REACTIONS (1)
  - Congenital renal cyst [Recovering/Resolving]

NARRATIVE: CASE EVENT DATE: 20180831
